FAERS Safety Report 6124858-3 (Version None)
Quarter: 2009Q1

REPORT INFORMATION
  Report Type: 
  Country: None (occurrence: None)
  Receive Date: 20090319
  Receipt Date: 20090309
  Transmission Date: 20090719
  Serious: Yes (Hospitalization)
  Sender: FDA-Public Use
  Company Number: JP-ROCHE-610895

PATIENT
  Sex: Female
  Weight: 44 kg

DRUGS (2)
  1. TAMIFLU [Suspect]
     Indication: INFLUENZA
     Dosage: FROMULATION REPORTED AS: DRY SYRUP.
     Route: 048
     Dates: start: 20090119, end: 20090120
  2. TAMIFLU [Suspect]
     Route: 048
     Dates: start: 20090121, end: 20090121

REACTIONS (2)
  - BINOCULAR EYE MOVEMENT DISORDER [None]
  - TRISMUS [None]
